FAERS Safety Report 7084320-0 (Version None)
Quarter: 2010Q4

REPORT INFORMATION
  Report Type: 
  Country: None (occurrence: None)
  Receive Date: 20101104
  Receipt Date: 20101029
  Transmission Date: 20110411
  Serious: Yes (Other)
  Sender: FDA-Public Use
  Company Number: PE-PFIZER INC-2010131151

PATIENT
  Age: 33 Year
  Sex: Female
  Weight: 60 kg

DRUGS (1)
  1. SUTENT [Suspect]

REACTIONS (5)
  - ABORTION EARLY [None]
  - ACCIDENTAL EXPOSURE [None]
  - DIZZINESS [None]
  - HEADACHE [None]
  - SOMNOLENCE [None]
